FAERS Safety Report 9512031 (Version 1)
Quarter: 2013Q3

REPORT INFORMATION
  Report Type: Spontaneous
  Country: US (occurrence: US)
  Receive Date: 20130910
  Receipt Date: 20130910
  Transmission Date: 20140515
  Serious: Yes (Other)
  Sender: FDA-Public Use
  Company Number: US-BAYER-2013-108664

PATIENT
  Age: 34 Year
  Sex: Male
  Weight: 73 kg

DRUGS (1)
  1. BETASERON [Suspect]
     Dosage: 0.25 MG, QOD
     Route: 058

REACTIONS (5)
  - Multiple sclerosis relapse [Unknown]
  - Balance disorder [Unknown]
  - Hypoaesthesia [Unknown]
  - Paraesthesia [Unknown]
  - Fatigue [Unknown]
